FAERS Safety Report 8080771-6 (Version None)
Quarter: 2012Q1

REPORT INFORMATION
  Report Type: 
  Country: None (occurrence: None)
  Receive Date: 20120130
  Receipt Date: 20120126
  Transmission Date: 20120608
  Serious: Yes (Other)
  Sender: FDA-Public Use
  Company Number: PHHY2011BE109262

PATIENT
  Age: 74 Year
  Sex: Female

DRUGS (8)
  1. ZOLEDRONOC ACID [Suspect]
     Indication: OSTEOPOROSIS
     Dosage: 5 MG
     Route: 042
     Dates: start: 20101001
  2. VITAMIN D [Concomitant]
     Indication: OSTEOPOROSIS
     Dosage: UNK UKN, UNK
  3. ANTIHYPERTENSIVE DRUGS [Concomitant]
     Dosage: UNK UKN, UNK
  4. URI CRAN [Concomitant]
     Indication: URINARY TRACT DISORDER
     Dosage: UNK UKN, UNK
  5. BENZODIAZEPINES [Concomitant]
     Dosage: UNK UKN, UNK
  6. CALCIUM [Concomitant]
     Indication: OSTEOPOROSIS
     Dosage: UNK UKN, UNK
  7. TOVIAZ [Concomitant]
     Dosage: UNK UKN, UNK
  8. LIPITOR [Concomitant]
     Dosage: UNK UKN, UNK

REACTIONS (4)
  - OSTEONECROSIS [None]
  - OSTEOSCLEROSIS [None]
  - BACK PAIN [None]
  - BONE LESION [None]
